FAERS Safety Report 10273925 (Version 2)
Quarter: 2014Q3

REPORT INFORMATION
  Report Type: Spontaneous
  Country: IT (occurrence: IT)
  Receive Date: 20140702
  Receipt Date: 20140912
  Transmission Date: 20150326
  Serious: Yes (Hospitalization)
  Sender: FDA-Public Use
  Company Number: IT-SA-2014SA086923

PATIENT
  Age: 89 Year
  Sex: Male

DRUGS (6)
  1. ALDACTONE [Suspect]
     Active Substance: SPIRONOLACTONE
     Indication: PRODUCT USED FOR UNKNOWN INDICATION
     Dosage: 25 MG DOSE:1 UNIT(S)
     Route: 048
     Dates: start: 20130401, end: 20140626
  2. PANTOPRAZOLE [Concomitant]
     Active Substance: PANTOPRAZOLE SODIUM
  3. ADENURIC [Concomitant]
     Active Substance: FEBUXOSTAT
     Dosage: STRENGTH: 80MG
     Route: 048
  4. TRIATEC [Suspect]
     Active Substance: RAMIPRIL
     Indication: HYPERTENSION
     Dosage: DOSE:1 UNIT(S)
     Route: 048
     Dates: start: 20130401, end: 20140526
  5. LASIX [Suspect]
     Active Substance: FUROSEMIDE
     Indication: HYPERTENSION
     Dosage: DOSE:2 UNIT(S)
     Route: 048
     Dates: start: 20130401, end: 20140626
  6. MONOKET [Concomitant]
     Active Substance: ISOSORBIDE MONONITRATE
     Dosage: STRENGTH: 40MG

REACTIONS (3)
  - Head injury [Recovering/Resolving]
  - Hyperkalaemia [Recovering/Resolving]
  - Syncope [Recovering/Resolving]

NARRATIVE: CASE EVENT DATE: 20140626
